FAERS Safety Report 6544801-2 (Version None)
Quarter: 2010Q1

REPORT INFORMATION
  Report Type: 
  Country: None (occurrence: None)
  Receive Date: 20100121
  Receipt Date: 20100113
  Transmission Date: 20100710
  Serious: Yes (Other)
  Sender: FDA-Public Use
  Company Number: US-JNJFOC-20070200885

PATIENT
  Sex: Female

DRUGS (7)
  1. RISPERDAL [Suspect]
     Indication: ANXIETY
     Route: 048
  2. RISPERDAL [Suspect]
     Indication: DEPRESSION
     Route: 048
  3. ZYPREXA [Suspect]
     Indication: ANXIETY
     Dosage: ONE-HALF
     Route: 048
  4. ZYPREXA [Suspect]
     Indication: DEPRESSION
     Dosage: ONE-HALF
     Route: 048
  5. ELAVIL [Suspect]
     Indication: DEPRESSION
     Route: 065
  6. CELEXA [Concomitant]
  7. WELLBUTRIN XL [Concomitant]

REACTIONS (2)
  - TYPE 2 DIABETES MELLITUS [None]
  - WEIGHT INCREASED [None]
